FAERS Safety Report 23102886 (Version 2)
Quarter: 2023Q4

REPORT INFORMATION
  Report Type: Report from Study
  Country: US (occurrence: US)
  Receive Date: 20231025
  Receipt Date: 20231101
  Transmission Date: 20240110
  Serious: Yes (Other)
  Sender: FDA-Public Use
  Company Number: US-ABBVIE-5463528

PATIENT
  Sex: Female
  Weight: 54 kg

DRUGS (3)
  1. RESTASIS [Suspect]
     Active Substance: CYCLOSPORINE
     Indication: Dry eye
     Dosage: FORM STRENGTH: 290 MICROGRAM
     Route: 065
  2. RESTASIS [Suspect]
     Active Substance: CYCLOSPORINE
     Dosage: DOSAGE: 0.5 MG/ML START DATE: 10-11 YEARS AGO; STOP DATE: JUN 2023 OR JUL 2023
     Route: 047
     Dates: end: 2023
  3. RESTASIS [Suspect]
     Active Substance: CYCLOSPORINE
     Route: 065

REACTIONS (7)
  - Blindness [Not Recovered/Not Resolved]
  - Dacryostenosis acquired [Not Recovered/Not Resolved]
  - Incorrect dose administered [Not Recovered/Not Resolved]
  - Vision blurred [Not Recovered/Not Resolved]
  - Expired product administered [Not Recovered/Not Resolved]
  - Poor quality product administered [Not Recovered/Not Resolved]
  - Visual impairment [Unknown]

NARRATIVE: CASE EVENT DATE: 20230101
